FAERS Safety Report 14902945 (Version 1)
Quarter: 2018Q2

REPORT INFORMATION
  Report Type: Spontaneous
  Country: US (occurrence: US)
  Receive Date: 20180516
  Receipt Date: 20180516
  Transmission Date: 20180711
  Serious: No
  Sender: FDA-Public Use
  Company Number: US-SA-2017SA100307

PATIENT
  Age: 73 Year
  Sex: Female
  Weight: 63.5 kg

DRUGS (16)
  1. DILTIAZEM. [Concomitant]
     Active Substance: DILTIAZEM
     Indication: DIABETES MELLITUS
     Route: 065
  2. ZYRTEC [Concomitant]
     Active Substance: CETIRIZINE HYDROCHLORIDE
     Route: 065
  3. ECOTRIN [Concomitant]
     Active Substance: ASPIRIN
     Route: 065
  4. CETIRIZINE [Concomitant]
     Active Substance: CETIRIZINE HYDROCHLORIDE
  5. GLIPIZIDE. [Concomitant]
     Active Substance: GLIPIZIDE
     Route: 065
  6. LANTUS SOLOSTAR [Suspect]
     Active Substance: INSULIN GLARGINE
     Indication: TYPE 2 DIABETES MELLITUS
     Dosage: 28 TO 30
     Route: 051
     Dates: start: 2015
  7. BENICAR [Concomitant]
     Active Substance: OLMESARTAN MEDOXOMIL
     Route: 065
     Dates: start: 200004
  8. CARTIA XT [Concomitant]
     Active Substance: DILTIAZEM HYDROCHLORIDE
     Route: 065
  9. OXYBUTYNIN. [Concomitant]
     Active Substance: OXYBUTYNIN CHLORIDE
     Route: 065
  10. LANTUS [Concomitant]
     Active Substance: INSULIN GLARGINE
     Dosage: DOSE:30 UNIT(S)
     Route: 065
  11. SOLOSTAR [Suspect]
     Active Substance: DEVICE
     Indication: TYPE 2 DIABETES MELLITUS
     Dates: start: 2015
  12. OLMESARTAN [Concomitant]
     Active Substance: OLMESARTAN
     Route: 065
  13. NAPROXEN. [Concomitant]
     Active Substance: NAPROXEN
     Indication: PAIN
     Route: 065
  14. JANUVIA [Concomitant]
     Active Substance: SITAGLIPTIN PHOSPHATE
     Indication: DIABETES MELLITUS
     Route: 065
  15. SIMVASTATIN. [Concomitant]
     Active Substance: SIMVASTATIN
     Route: 065
  16. TYLENOL [Concomitant]
     Active Substance: ACETAMINOPHEN
     Indication: ARTHRITIS
     Route: 065

REACTIONS (3)
  - Cataract [Not Recovered/Not Resolved]
  - Alopecia [Recovered/Resolved]
  - Pain in extremity [Unknown]
